FAERS Safety Report 6148483-3 (Version None)
Quarter: 2009Q2

REPORT INFORMATION
  Report Type: 
  Country: None (occurrence: None)
  Receive Date: 20090408
  Receipt Date: 20090403
  Transmission Date: 20091009
  Serious: Yes (Disabling, Other)
  Sender: FDA-Public Use
  Company Number: PHHY2008JP12288

PATIENT
  Age: 72 Year

DRUGS (3)
  1. GLEEVEC [Suspect]
     Indication: CHRONIC MYELOID LEUKAEMIA
     Dosage: 400 MG, QD
     Route: 048
     Dates: start: 20040801
  2. GLEEVEC [Suspect]
     Dosage: UNK
  3. GLEEVEC [Suspect]
     Dosage: 300 MG, QD
     Route: 048

REACTIONS (6)
  - CHRONIC RESPIRATORY FAILURE [None]
  - INTERSTITIAL LUNG DISEASE [None]
  - LEUKOPENIA [None]
  - NAUSEA [None]
  - RASH [None]
  - THROMBOCYTOPENIA [None]
